FAERS Safety Report 5010772-3 (Version None)
Quarter: 2006Q2

REPORT INFORMATION
  Report Type: 
  Country: None (occurrence: None)
  Receive Date: 20060525
  Receipt Date: 20060404
  Transmission Date: 20061013
  Serious: Yes (Hospitalization)
  Sender: FDA-Public Use
  Company Number: JP-ROCHE-443493

PATIENT
  Age: 76 Year
  Sex: Female
  Weight: 41 kg

DRUGS (11)
  1. XELODA [Suspect]
     Indication: BREAST CANCER METASTATIC
     Dosage: 3 WEEKS ADMINISTRATION FOLLOWED BY 1 WEEK REST.
     Route: 048
     Dates: start: 20060314, end: 20060331
  2. PYRIDOXAL PHOSPHATE [Concomitant]
     Dosage: REPORTED AS PYDOXAL.
     Route: 048
     Dates: start: 20060314, end: 20060404
  3. NOVOLIN R [Concomitant]
     Dosage: REPORTED AS NOVOLIN 30R. 12U IN THE MORNING AND 4U IN THE EVENING.
     Route: 058
     Dates: start: 20010615
  4. HERCEPTIN [Concomitant]
     Dosage: 150 MG AS LOADING DOSE FOLLOWED BY MAINTENANCE DOSE OF 80 MG WEEKLY.
     Route: 041
     Dates: start: 20050901, end: 20060404
  5. CLARITIN [Concomitant]
     Route: 048
     Dates: end: 20060411
  6. OMEPRAL [Concomitant]
     Route: 048
     Dates: start: 20051221
  7. PROMAC [Concomitant]
     Route: 048
     Dates: start: 20051221
  8. MYSER [Concomitant]
     Dosage: DOSAGE ADJUSTED.
     Route: 061
     Dates: start: 20060113
  9. MS CONTIN [Concomitant]
     Dosage: 10 MG IN THE MORNING, 10 MG IN DAY TIME AND 20 MG IN THE EVENING.  SUSTAINED RELEASE TABLET. FROM 2+
     Route: 048
     Dates: start: 20060221
  10. MORPHINE [Concomitant]
     Dosage: DRUG: OPSO. TAKEN AS NEEDED.
     Route: 048
     Dates: start: 20060221
  11. ALLELOCK [Concomitant]
     Route: 048
     Dates: start: 20060228

REACTIONS (6)
  - FACE OEDEMA [None]
  - LIP HAEMORRHAGE [None]
  - PALMAR-PLANTAR ERYTHRODYSAESTHESIA SYNDROME [None]
  - SKIN ULCER [None]
  - STOMATITIS [None]
  - SWELLING FACE [None]
